FAERS Safety Report 15813831 (Version 1)
Quarter: 2019Q1

REPORT INFORMATION
  Report Type: Spontaneous
  Country: GB (occurrence: GB)
  Receive Date: 20190111
  Receipt Date: 20190111
  Transmission Date: 20190417
  Serious: Yes (Other)
  Sender: FDA-Public Use
  Company Number: GB-SEPTODONT-201804976

PATIENT
  Age: 59 Year
  Sex: Male
  Weight: 66.67 kg

DRUGS (1)
  1. SEPTANEST [Suspect]
     Active Substance: ARTICAINE HYDROCHLORIDE\EPINEPHRINE BITARTRATE
     Indication: ANAESTHESIA
     Route: 051
     Dates: start: 20181024, end: 20181024

REACTIONS (4)
  - Paraesthesia [Not Recovered/Not Resolved]
  - Tension headache [Recovered/Resolved with Sequelae]
  - Blindness [Recovered/Resolved]
  - Hypoaesthesia [Not Recovered/Not Resolved]

NARRATIVE: CASE EVENT DATE: 20181024
